FAERS Safety Report 7206054-1 (Version None)
Quarter: 2010Q4

REPORT INFORMATION
  Report Type: 
  Country: None (occurrence: None)
  Receive Date: 20101229
  Receipt Date: 20101229
  Transmission Date: 20110411
  Serious: Yes (Disabling)
  Sender: FDA-Public Use
  Company Number: None

PATIENT
  Age: 59 Year
  Sex: Female
  Weight: 54.4316 kg

DRUGS (3)
  1. ETHAMBUTOL HYDROCHLORIDE [Suspect]
     Indication: MYCOBACTERIUM AVIUM COMPLEX INFECTION
     Dosage: 3 X 400 MG DAILY ORAL
     Route: 048
     Dates: start: 20100201, end: 20100827
  2. RIFAMPIN [Suspect]
     Indication: MYCOBACTERIUM AVIUM COMPLEX INFECTION
     Dosage: 2 X 300 MG DAILY ORAL
     Route: 048
     Dates: start: 20100201, end: 20100827
  3. AZITHROMYCIN [Suspect]
     Indication: MYCOBACTERIUM AVIUM COMPLEX INFECTION
     Dosage: 2 X 250 MG DAILY ORAL
     Route: 048
     Dates: start: 20100201, end: 20100827

REACTIONS (5)
  - BLINDNESS [None]
  - CHEST PAIN [None]
  - NECK PAIN [None]
  - OPTIC NEURITIS [None]
  - PAIN [None]
